FAERS Safety Report 13907131 (Version 2)
Quarter: 2017Q4

REPORT INFORMATION
  Report Type: Spontaneous
  Country: DK (occurrence: DK)
  Receive Date: 20170825
  Receipt Date: 20171106
  Transmission Date: 20180320
  Serious: Yes (Hospitalization, Other)
  Sender: FDA-Public Use
  Company Number: DK-PFIZER INC-2017359838

PATIENT
  Age: 32 Year
  Sex: Female

DRUGS (1)
  1. CHAMPIX [Suspect]
     Active Substance: VARENICLINE TARTRATE
     Indication: SMOKING CESSATION THERAPY
     Dosage: 0.5 MG, 2X/DAY

REACTIONS (2)
  - Unintended pregnancy [Recovered/Resolved]
  - Foetal death [Recovered/Resolved]

NARRATIVE: CASE EVENT DATE: 20170529
